FAERS Safety Report 18719128 (Version 1)
Quarter: 2021Q1

REPORT INFORMATION
  Report Type: Spontaneous
  Country: CN (occurrence: CN)
  Receive Date: 20210108
  Receipt Date: 20210108
  Transmission Date: 20210419
  Serious: Yes (Death)
  Sender: FDA-Public Use
  Company Number: CN-ASTRAZENECA-2021A002947

PATIENT
  Age: 82 Year
  Sex: Male
  Weight: 52 kg

DRUGS (1)
  1. IMFINZI [Suspect]
     Active Substance: DURVALUMAB
     Indication: NON-SMALL CELL LUNG CANCER STAGE III
     Dosage: THE STRENGTH AND DOSAGE OF DRUG WAS 500 MG, THE DOSAGE OF LAST DRUG ADMINISTRATION WAS 500 MG PER...
     Route: 030
     Dates: start: 20200425, end: 20200508

REACTIONS (1)
  - Death [Fatal]

NARRATIVE: CASE EVENT DATE: 202010
